FAERS Safety Report 8257937-5 (Version None)
Quarter: 2012Q2

REPORT INFORMATION
  Report Type: 
  Country: None (occurrence: None)
  Receive Date: 20120404
  Receipt Date: 20120402
  Transmission Date: 20120825
  Serious: Yes (Other)
  Sender: FDA-Public Use
  Company Number: GB-ACCORD-012924

PATIENT
  Age: 88 Year
  Sex: Female

DRUGS (1)
  1. FINASTERIDE [Suspect]

REACTIONS (1)
  - DRUG DISPENSING ERROR [None]
